FAERS Safety Report 12441665 (Version 4)
Quarter: 2016Q3

REPORT INFORMATION
  Report Type: Spontaneous
  Country: JP (occurrence: JP)
  Receive Date: 20160607
  Receipt Date: 20160810
  Transmission Date: 20161109
  Serious: Yes (Other)
  Sender: FDA-Public Use
  Company Number: JP-009507513-1606JPN002596

PATIENT
  Age: 44 Year
  Sex: Male

DRUGS (8)
  1. DOGMATYL [Suspect]
     Active Substance: SULPIRIDE
     Indication: DEPRESSION
     Dosage: 150 MG/ DAY
     Route: 048
     Dates: start: 20160111, end: 20160529
  2. DOGMATYL [Suspect]
     Active Substance: SULPIRIDE
     Dosage: 150 MG/ DAY
     Route: 048
     Dates: start: 2016
  3. DOGMATYL [Suspect]
     Active Substance: SULPIRIDE
     Dosage: 500 MG, ONCE
     Route: 048
     Dates: start: 20160530, end: 20160530
  4. MIRTAZAPINE. [Suspect]
     Active Substance: MIRTAZAPINE
     Dosage: 15 MG, QD
     Route: 048
     Dates: start: 20160611, end: 2016
  5. MIRTAZAPINE. [Suspect]
     Active Substance: MIRTAZAPINE
     Indication: DEPRESSION
     Dosage: 15 MG, QD
     Route: 048
     Dates: start: 20150707, end: 20160529
  6. MIRTAZAPINE. [Suspect]
     Active Substance: MIRTAZAPINE
     Dosage: 150 MG, ONCE
     Route: 048
     Dates: start: 20160530, end: 20160530
  7. MIRTAZAPINE. [Suspect]
     Active Substance: MIRTAZAPINE
     Dosage: 15 MG, QD
     Route: 048
     Dates: start: 201606
  8. MIRTAZAPINE. [Suspect]
     Active Substance: MIRTAZAPINE
     Dosage: 225 MG, ONCE
     Route: 048
     Dates: start: 201606, end: 201606

REACTIONS (1)
  - Intentional overdose [Recovered/Resolved]

NARRATIVE: CASE EVENT DATE: 20160530
